FAERS Safety Report 21884010 (Version 1)
Quarter: 2023Q1

REPORT INFORMATION
  Report Type: Other
  Country: IE (occurrence: None)
  Receive Date: 20230119
  Receipt Date: 20230119
  Transmission Date: 20230418
  Serious: Yes (Other)
  Sender: FDA-Public Use
  Company Number: IE-ROCHE-3265640

PATIENT
  Sex: Female

DRUGS (1)
  1. OCRELIZUMAB [Suspect]
     Active Substance: OCRELIZUMAB
     Indication: Product used for unknown indication
     Dosage: 600MGS X 2 VIALS 300MGS
     Route: 042

REACTIONS (3)
  - Raynaud^s phenomenon [Unknown]
  - Fatigue [Unknown]
  - Cystitis [Not Recovered/Not Resolved]
